FAERS Safety Report 10553220 (Version 2)
Quarter: 2015Q1

REPORT INFORMATION
  Report Type: Report from Study
  Country: PT (occurrence: PT)
  Receive Date: 20141030
  Receipt Date: 20150210
  Transmission Date: 20150720
  Serious: Yes (Death, Other)
  Sender: FDA-Public Use
  Company Number: PT-ROCHE-1480105

PATIENT

DRUGS (1)
  1. RITUXIMAB [Suspect]
     Active Substance: RITUXIMAB
     Indication: SYSTEMIC LUPUS ERYTHEMATOSUS
     Route: 042

REACTIONS (7)
  - Infection [Unknown]
  - Hypersensitivity [Unknown]
  - Infusion related reaction [Unknown]
  - Death [Fatal]
  - Hypogammaglobulinaemia [Unknown]
  - Product use issue [Unknown]
  - Cardiovascular disorder [Fatal]
